FAERS Safety Report 25372167 (Version 1)
Quarter: 2025Q2

REPORT INFORMATION
  Report Type: Spontaneous
  Country: US (occurrence: US)
  Receive Date: 20250529
  Receipt Date: 20250529
  Transmission Date: 20250717
  Serious: Yes (Other)
  Sender: NOVO NORDISK
  Company Number: US-NOVOPROD-1438207

PATIENT
  Age: 62 Year
  Sex: Female

DRUGS (1)
  1. OZEMPIC [Suspect]
     Active Substance: SEMAGLUTIDE
     Indication: Type 2 diabetes mellitus
     Dates: start: 2023

REACTIONS (6)
  - Abdominal infection [Unknown]
  - Pain [Unknown]
  - Muscular weakness [Unknown]
  - Amnesia [Unknown]
  - Alopecia [Unknown]
  - Illness [Unknown]

NARRATIVE: CASE EVENT DATE: 20250401
